FAERS Safety Report 10543763 (Version 1)
Quarter: 2014Q4

REPORT INFORMATION
  Report Type: Spontaneous
  Country: FR (occurrence: FR)
  Receive Date: 20141027
  Receipt Date: 20141027
  Transmission Date: 20150529
  Serious: Yes (Hospitalization)
  Sender: FDA-Public Use
  Company Number: FR-SA-2014SA141897

PATIENT
  Age: 65 Year
  Sex: Male

DRUGS (20)
  1. SPECIAFOLDINE [Concomitant]
     Active Substance: FOLIC ACID
     Dosage: FREQUENCY: MORNING, NOON AND EVENING
  2. DIAMICRON [Concomitant]
     Active Substance: GLICLAZIDE
     Dosage: IN THE MORNING
  3. NATISPRAY [Concomitant]
     Active Substance: NITROGLYCERIN
     Dosage: STRENGTH: 0.15 MG?2 PULSATIONS IF NEEDED
  4. JANUVIA [Concomitant]
     Active Substance: SITAGLIPTIN PHOSPHATE
     Dosage: FREQUENCY: IN THE MORNING
  5. GLUCOPHAGE [Concomitant]
     Active Substance: METFORMIN HYDROCHLORIDE
     Dosage: FREQUENCY: MORNING, NOON AND EVENING
  6. RAMIPRIL. [Concomitant]
     Active Substance: RAMIPRIL
     Dosage: MORNING AND EVENING
  7. LYRICA [Concomitant]
     Active Substance: PREGABALIN
     Dosage: MORNING AND EVENING
  8. XATRAL LP [Concomitant]
     Active Substance: ALFUZOSIN
     Dosage: NOON
  9. CORDARONE [Concomitant]
     Active Substance: AMIODARONE HYDROCHLORIDE
     Dosage: IN THE MORNING
  10. INEXIUM [Concomitant]
     Active Substance: ESOMEPRAZOLE
     Dosage: STRENGTH: 40 MG
  11. KREDEX [Concomitant]
     Active Substance: CARVEDILOL
     Dosage: 1 TABLET MORNING AND EVENING?STRENGTH: 12.5 MG
  12. SERESTA [Concomitant]
     Active Substance: OXAZEPAM
     Dosage: FREQUENCY: AT BEDTIME
  13. TAHOR [Concomitant]
     Active Substance: ATORVASTATIN CALCIUM
     Dosage: AT EVENING
  14. MIANSERIN [Concomitant]
     Active Substance: MIANSERIN
     Dosage: AT BEDTIME
  15. PLAVIX [Suspect]
     Active Substance: CLOPIDOGREL BISULFATE
     Indication: VASCULAR GRAFT
     Dosage: DOSE: 1 DF IN 1 DAY
     Route: 048
  16. TARDYFERON [Concomitant]
     Active Substance: FERROUS SULFATE\FOLIC ACID
     Dosage: FREQUENCY: MORNING AND EVENING
  17. TYLENOL [Concomitant]
     Active Substance: ACETAMINOPHEN
     Dosage: STRENGTH: 1000 MG MAX 4000 MG/DAY?TAKE A TABLET IF NEEDED
  18. SPIRONOLACTONE. [Concomitant]
     Active Substance: SPIRONOLACTONE
     Dosage: IN THE MORNING
  19. FUROSEMIDE. [Concomitant]
     Active Substance: FUROSEMIDE
     Dosage: STRENGTH: 125 MG IN THE MORNING
  20. MOVICOL [Concomitant]
     Active Substance: POLYETHYLENE GLYCOL 3350\POTASSIUM CHLORIDE\SODIUM BICARBONATE\SODIUM CHLORIDE
     Dosage: STRENGTH: 3350 MG?2 SACHETS IN THE MORNING

REACTIONS (4)
  - Urinary retention [Recovered/Resolved]
  - Haematuria [Recovered/Resolved]
  - Haematoma [Recovered/Resolved]
  - Anaemia [Recovered/Resolved]

NARRATIVE: CASE EVENT DATE: 20140927
